FAERS Safety Report 13711422 (Version 1)
Quarter: 2017Q3

REPORT INFORMATION
  Report Type: Spontaneous
  Country: GB (occurrence: GB)
  Receive Date: 20170703
  Receipt Date: 20170703
  Transmission Date: 20171127
  Serious: Yes (Other)
  Sender: FDA-Public Use
  Company Number: GB-ALLERGAN-1727259US

PATIENT
  Sex: Male

DRUGS (2)
  1. RISEDRONATE SODIUM UNK [Suspect]
     Active Substance: RISEDRONATE SODIUM
     Indication: DUCHENNE MUSCULAR DYSTROPHY
     Dosage: UNK
     Route: 048
     Dates: start: 200801
  2. VITAMIN D [Concomitant]
     Active Substance: CHOLECALCIFEROL
     Dosage: 800-10000 UNITS DAILY

REACTIONS (2)
  - Off label use [Unknown]
  - Fracture [Unknown]

NARRATIVE: CASE EVENT DATE: 200801
